FAERS Safety Report 6392449-5 (Version None)
Quarter: 2009Q4

REPORT INFORMATION
  Report Type: 
  Country: None (occurrence: None)
  Receive Date: 20091007
  Receipt Date: 20090924
  Transmission Date: 20100525
  Serious: Yes (Hospitalization)
  Sender: FDA-Public Use
  Company Number: ES-PFIZER INC-2009253525

PATIENT
  Age: 81 Year

DRUGS (6)
  1. ALDACTONE [Suspect]
     Indication: RENAL FAILURE CHRONIC
     Dosage: 50 MG, DAILY
     Route: 048
     Dates: end: 20090320
  2. ALLOPURINOL [Suspect]
     Indication: HYPERURICAEMIA
     Dosage: UNK
     Route: 048
     Dates: end: 20090320
  3. ARANESP [Suspect]
     Indication: ANAEMIA
     Dosage: UNK
     Route: 058
     Dates: start: 20080101, end: 20090320
  4. ATENOLOL [Concomitant]
     Indication: ATRIAL FIBRILLATION
     Dosage: 25 MG, DAILY
     Route: 048
  5. FRAGMIN [Concomitant]
     Indication: ATRIAL FIBRILLATION
     Dosage: 5000 IU, DAILY
     Route: 058
  6. SEGURIL [Concomitant]
     Indication: RENAL FAILURE CHRONIC
     Dosage: UNK

REACTIONS (2)
  - RASH PAPULOSQUAMOUS [None]
  - RENAL FAILURE ACUTE [None]
